FAERS Safety Report 25592322 (Version 1)
Quarter: 2025Q3

REPORT INFORMATION
  Report Type: Spontaneous
  Country: EU (occurrence: EU)
  Receive Date: 20250722
  Receipt Date: 20250722
  Transmission Date: 20251021
  Serious: Yes (Hospitalization)
  Sender: MYLAN
  Company Number: None

PATIENT
  Age: 70 Year
  Sex: Female

DRUGS (60)
  1. MOXIFLOXACIN [Suspect]
     Active Substance: MOXIFLOXACIN
     Indication: Tuberculosis
     Dates: start: 20250315, end: 20250422
  2. MOXIFLOXACIN [Suspect]
     Active Substance: MOXIFLOXACIN
     Route: 048
     Dates: start: 20250315, end: 20250422
  3. MOXIFLOXACIN [Suspect]
     Active Substance: MOXIFLOXACIN
     Route: 048
     Dates: start: 20250315, end: 20250422
  4. MOXIFLOXACIN [Suspect]
     Active Substance: MOXIFLOXACIN
     Dates: start: 20250315, end: 20250422
  5. ISONIAZID [Suspect]
     Active Substance: ISONIAZID
     Indication: Tuberculosis
     Dates: start: 20250116, end: 20250422
  6. ISONIAZID [Suspect]
     Active Substance: ISONIAZID
     Route: 048
     Dates: start: 20250116, end: 20250422
  7. ISONIAZID [Suspect]
     Active Substance: ISONIAZID
     Route: 048
     Dates: start: 20250116, end: 20250422
  8. ISONIAZID [Suspect]
     Active Substance: ISONIAZID
     Dates: start: 20250116, end: 20250422
  9. WARFARIN SODIUM [Concomitant]
     Active Substance: WARFARIN SODIUM
  10. WARFARIN SODIUM [Concomitant]
     Active Substance: WARFARIN SODIUM
     Route: 065
  11. WARFARIN SODIUM [Concomitant]
     Active Substance: WARFARIN SODIUM
     Route: 065
  12. WARFARIN SODIUM [Concomitant]
     Active Substance: WARFARIN SODIUM
  13. INNOHEP [Concomitant]
     Active Substance: TINZAPARIN SODIUM
  14. INNOHEP [Concomitant]
     Active Substance: TINZAPARIN SODIUM
     Route: 065
  15. INNOHEP [Concomitant]
     Active Substance: TINZAPARIN SODIUM
     Route: 065
  16. INNOHEP [Concomitant]
     Active Substance: TINZAPARIN SODIUM
  17. ALLOPURINOL [Concomitant]
     Active Substance: ALLOPURINOL
  18. ALLOPURINOL [Concomitant]
     Active Substance: ALLOPURINOL
     Route: 065
  19. ALLOPURINOL [Concomitant]
     Active Substance: ALLOPURINOL
     Route: 065
  20. ALLOPURINOL [Concomitant]
     Active Substance: ALLOPURINOL
  21. AMLODIPINE BESYLATE\IRBESARTAN [Concomitant]
     Active Substance: AMLODIPINE BESYLATE\IRBESARTAN
  22. AMLODIPINE BESYLATE\IRBESARTAN [Concomitant]
     Active Substance: AMLODIPINE BESYLATE\IRBESARTAN
     Route: 065
  23. AMLODIPINE BESYLATE\IRBESARTAN [Concomitant]
     Active Substance: AMLODIPINE BESYLATE\IRBESARTAN
     Route: 065
  24. AMLODIPINE BESYLATE\IRBESARTAN [Concomitant]
     Active Substance: AMLODIPINE BESYLATE\IRBESARTAN
  25. ROSUVASTATIN [Concomitant]
     Active Substance: ROSUVASTATIN
  26. ROSUVASTATIN [Concomitant]
     Active Substance: ROSUVASTATIN
     Route: 065
  27. ROSUVASTATIN [Concomitant]
     Active Substance: ROSUVASTATIN
     Route: 065
  28. ROSUVASTATIN [Concomitant]
     Active Substance: ROSUVASTATIN
  29. BISOPROLOL FUMARATE [Concomitant]
     Active Substance: BISOPROLOL FUMARATE
  30. BISOPROLOL FUMARATE [Concomitant]
     Active Substance: BISOPROLOL FUMARATE
     Route: 065
  31. BISOPROLOL FUMARATE [Concomitant]
     Active Substance: BISOPROLOL FUMARATE
     Route: 065
  32. BISOPROLOL FUMARATE [Concomitant]
     Active Substance: BISOPROLOL FUMARATE
  33. ESOMEPRAZOLE [Concomitant]
     Active Substance: ESOMEPRAZOLE
  34. ESOMEPRAZOLE [Concomitant]
     Active Substance: ESOMEPRAZOLE
     Route: 065
  35. ESOMEPRAZOLE [Concomitant]
     Active Substance: ESOMEPRAZOLE
     Route: 065
  36. ESOMEPRAZOLE [Concomitant]
     Active Substance: ESOMEPRAZOLE
  37. FOLIC ACID [Concomitant]
     Active Substance: FOLIC ACID
  38. FOLIC ACID [Concomitant]
     Active Substance: FOLIC ACID
     Route: 065
  39. FOLIC ACID [Concomitant]
     Active Substance: FOLIC ACID
     Route: 065
  40. FOLIC ACID [Concomitant]
     Active Substance: FOLIC ACID
  41. FERROUS FUMARATE [Concomitant]
     Active Substance: FERROUS FUMARATE
  42. FERROUS FUMARATE [Concomitant]
     Active Substance: FERROUS FUMARATE
     Route: 065
  43. FERROUS FUMARATE [Concomitant]
     Active Substance: FERROUS FUMARATE
     Route: 065
  44. FERROUS FUMARATE [Concomitant]
     Active Substance: FERROUS FUMARATE
  45. DARUNAVIR [Concomitant]
     Active Substance: DARUNAVIR
  46. DARUNAVIR [Concomitant]
     Active Substance: DARUNAVIR
     Route: 065
  47. DARUNAVIR [Concomitant]
     Active Substance: DARUNAVIR
     Route: 065
  48. DARUNAVIR [Concomitant]
     Active Substance: DARUNAVIR
  49. RITONAVIR [Concomitant]
     Active Substance: RITONAVIR
  50. RITONAVIR [Concomitant]
     Active Substance: RITONAVIR
     Route: 065
  51. RITONAVIR [Concomitant]
     Active Substance: RITONAVIR
     Route: 065
  52. RITONAVIR [Concomitant]
     Active Substance: RITONAVIR
  53. DOLUTEGRAVIR [Concomitant]
     Active Substance: DOLUTEGRAVIR
  54. DOLUTEGRAVIR [Concomitant]
     Active Substance: DOLUTEGRAVIR
     Route: 065
  55. DOLUTEGRAVIR [Concomitant]
     Active Substance: DOLUTEGRAVIR
     Route: 065
  56. DOLUTEGRAVIR [Concomitant]
     Active Substance: DOLUTEGRAVIR
  57. LAMIVUDINE [Concomitant]
     Active Substance: LAMIVUDINE
  58. LAMIVUDINE [Concomitant]
     Active Substance: LAMIVUDINE
     Route: 065
  59. LAMIVUDINE [Concomitant]
     Active Substance: LAMIVUDINE
     Route: 065
  60. LAMIVUDINE [Concomitant]
     Active Substance: LAMIVUDINE

REACTIONS (1)
  - Hepatic cytolysis [Not Recovered/Not Resolved]

NARRATIVE: CASE EVENT DATE: 20250422
